FAERS Safety Report 16933114 (Version 1)
Quarter: 2019Q4

REPORT INFORMATION
  Report Type: Spontaneous
  Country: US (occurrence: US)
  Receive Date: 20191018
  Receipt Date: 20191018
  Transmission Date: 20200122
  Serious: No
  Sender: FDA-Public Use
  Company Number: US-TEVA-2019-US-1124840

PATIENT
  Sex: Female

DRUGS (1)
  1. QVAR REDIHALER [Suspect]
     Active Substance: BECLOMETHASONE DIPROPIONATE

REACTIONS (5)
  - Chest discomfort [Unknown]
  - Incorrect dose administered [Unknown]
  - Asthma [Unknown]
  - Drug delivery system issue [Unknown]
  - Drug ineffective [Unknown]
